FAERS Safety Report 6126269-3 (Version None)
Quarter: 2009Q1

REPORT INFORMATION
  Report Type: 
  Country: None (occurrence: None)
  Receive Date: 20090320
  Receipt Date: 20090317
  Transmission Date: 20090719
  Serious: Yes (Life-Threatening, Hospitalization, Disabling)
  Sender: FDA-Public Use
  Company Number: PHHY2009DE05642

PATIENT
  Sex: Female
  Weight: 70 kg

DRUGS (2)
  1. FEMARA [Suspect]
     Indication: BREAST CANCER
     Dosage: 2.5 MG, QD
     Route: 048
     Dates: start: 20081001
  2. ANTIPSYCHOTICS [Concomitant]
     Indication: PSYCHOTIC DISORDER

REACTIONS (2)
  - COMA [None]
  - PANCREATITIS NECROTISING [None]
